FAERS Safety Report 7016932-4 (Version None)
Quarter: 2010Q3

REPORT INFORMATION
  Report Type: 
  Country: None (occurrence: None)
  Receive Date: 20100927
  Receipt Date: 20100820
  Transmission Date: 20110219
  Serious: No
  Sender: FDA-Public Use
  Company Number: US-PFIZER INC-2010089802

PATIENT
  Sex: Female

DRUGS (3)
  1. OGEN [Suspect]
     Dosage: UNK
  2. ESTROPIPATE [Suspect]
     Dosage: UNK
  3. PREMARIN [Suspect]
     Dosage: UNK

REACTIONS (2)
  - MALAISE [None]
  - NAUSEA [None]
